FAERS Safety Report 6042640-2 (Version None)
Quarter: 2009Q1

REPORT INFORMATION
  Report Type: 
  Country: None (occurrence: None)
  Receive Date: 20090119
  Receipt Date: 20090105
  Transmission Date: 20090719
  Serious: Yes (Other)
  Sender: FDA-Public Use
  Company Number: PHHY2008CN06624

PATIENT
  Age: 28 Year
  Sex: Female

DRUGS (1)
  1. PARLODEL [Suspect]
     Indication: HYPERPROLACTINAEMIA
     Dosage: 2.5 MG, QD
     Route: 048
     Dates: start: 20070501

REACTIONS (2)
  - CAESAREAN SECTION [None]
  - DRUG EXPOSURE DURING PREGNANCY [None]
